FAERS Safety Report 25524612 (Version 1)
Quarter: 2025Q3

REPORT INFORMATION
  Report Type: Spontaneous
  Country: CA (occurrence: CA)
  Receive Date: 20250707
  Receipt Date: 20250707
  Transmission Date: 20251020
  Serious: Yes (Disabling, Other)
  Sender: MYLAN
  Company Number: CA-MYLANLABS-2025M1055229

PATIENT
  Age: 23 Year
  Sex: Female
  Weight: 54.43 kg

DRUGS (1)
  1. ISOTRETINOIN [Suspect]
     Active Substance: ISOTRETINOIN
     Indication: Product used for unknown indication
     Dosage: 40.0 MILLIGRAM, QD (1 EVERY 1 DAYS)

REACTIONS (5)
  - Neuropathy peripheral [Not Recovered/Not Resolved]
  - Eye pain [Not Recovered/Not Resolved]
  - Dry eye [Not Recovered/Not Resolved]
  - Suicidal ideation [Not Recovered/Not Resolved]
  - Impaired work ability [Not Recovered/Not Resolved]
